FAERS Safety Report 23072522 (Version 3)
Quarter: 2023Q4

REPORT INFORMATION
  Report Type: Spontaneous
  Country: JP (occurrence: JP)
  Receive Date: 20231017
  Receipt Date: 20231130
  Transmission Date: 20240110
  Serious: Yes (Hospitalization, Other)
  Sender: FDA-Public Use
  Company Number: JP-GSKNCCC-Case-01821488_AE-75704

PATIENT

DRUGS (14)
  1. LAMICTAL [Suspect]
     Active Substance: LAMOTRIGINE
     Indication: Epilepsy
     Dosage: 25 MG, 1D
     Route: 048
     Dates: start: 20230506, end: 20230513
  2. LAMICTAL [Suspect]
     Active Substance: LAMOTRIGINE
     Dosage: 25 MG, BID
     Route: 048
     Dates: start: 20230514, end: 20230607
  3. LAMICTAL [Suspect]
     Active Substance: LAMOTRIGINE
     Dosage: 50 MG, BID
     Route: 048
     Dates: start: 20230608, end: 20230615
  4. LAMICTAL [Suspect]
     Active Substance: LAMOTRIGINE
     Dosage: 100 MG, BID
     Route: 048
     Dates: start: 20230616, end: 20230622
  5. LAMICTAL [Suspect]
     Active Substance: LAMOTRIGINE
     Dosage: 75 MG, BID
     Route: 048
     Dates: start: 20230623, end: 20230807
  6. LAMICTAL [Suspect]
     Active Substance: LAMOTRIGINE
     Dosage: 100 MG, BID
     Route: 048
     Dates: start: 20230808, end: 20230920
  7. LAMICTAL [Suspect]
     Active Substance: LAMOTRIGINE
     Dosage: 125 MG, BID
     Route: 048
     Dates: start: 20230921, end: 20230924
  8. IMFINZI [Concomitant]
     Active Substance: DURVALUMAB
     Indication: Hepatocellular carcinoma
     Dosage: 1500 MG/DOSE
     Route: 041
     Dates: start: 20230828, end: 20230828
  9. IMJUDO [Concomitant]
     Active Substance: TREMELIMUMAB\TREMELIMUMAB-ACTL
     Indication: Hepatocellular carcinoma
     Dosage: 300 MG/DOSE
     Route: 041
     Dates: start: 20230828, end: 20230828
  10. DAYVIGO [Concomitant]
     Active Substance: LEMBOREXANT
     Indication: Insomnia
     Dosage: 5 MG/DOSE
     Route: 048
     Dates: start: 20230808
  11. CALONAL [Concomitant]
     Active Substance: ACETAMINOPHEN
     Indication: Pyrexia
     Dosage: 500 MG/DOSE
     Route: 048
     Dates: start: 20230511, end: 20231012
  12. CALONAL [Concomitant]
     Active Substance: ACETAMINOPHEN
     Indication: Pain
     Dosage: 500 MG/DOSE
     Route: 048
     Dates: start: 20231023
  13. LOXOPROFEN SODIUM [Concomitant]
     Active Substance: LOXOPROFEN SODIUM
     Indication: Pyrexia
     Dosage: 60 MG/DOSE
     Route: 048
     Dates: end: 20231011
  14. LOXOPROFEN SODIUM [Concomitant]
     Active Substance: LOXOPROFEN SODIUM
     Indication: Pain

REACTIONS (12)
  - Pancytopenia [Recovering/Resolving]
  - Epilepsy [Recovered/Resolved]
  - Pneumonia [Recovering/Resolving]
  - Drug eruption [Recovering/Resolving]
  - Pyrexia [Recovered/Resolved]
  - Psychiatric symptom [Recovering/Resolving]
  - Agitation [Recovering/Resolving]
  - Persecutory delusion [Recovering/Resolving]
  - Affect lability [Recovering/Resolving]
  - Inappropriate schedule of product administration [Unknown]
  - Drug titration error [Unknown]
  - Off label use [Unknown]

NARRATIVE: CASE EVENT DATE: 20230510
